FAERS Safety Report 4451036-6 (Version None)
Quarter: 2004Q3

REPORT INFORMATION
  Report Type: 
  Country: None (occurrence: None)
  Receive Date: 20040913
  Receipt Date: 20040616
  Transmission Date: 20050211
  Serious: No
  Sender: FDA-Public Use
  Company Number: 2004-BP-04891BP (0)

PATIENT
  Age: 59 Year
  Sex: Female

DRUGS (12)
  1. SPIRIVA [Suspect]
     Indication: CHRONIC OBSTRUCTIVE AIRWAYS DISEASE
     Dosage: 18 MCG (18 MCG, 1 INHALATION OD) IH
     Route: 055
     Dates: start: 20040601
  2. LASIX [Concomitant]
  3. XYLOCAINE [Concomitant]
  4. AMIODARONE HCL [Concomitant]
  5. DILANTIN [Concomitant]
  6. XOPENEX (LEVOSALBUTAMIL) [Concomitant]
  7. MUCINEX (GUAIFENESIN) [Concomitant]
  8. LANOXIN [Concomitant]
  9. XANAX [Concomitant]
  10. ACETYLSALICYLIC ACID SRT [Concomitant]
  11. KCL (POTASSIUM CHLORIDE) [Concomitant]
  12. OMNICEF [Concomitant]

REACTIONS (3)
  - DRY MOUTH [None]
  - EPISTAXIS [None]
  - TREMOR [None]
